FAERS Safety Report 5129904-1 (Version None)
Quarter: 2006Q4

REPORT INFORMATION
  Report Type: 
  Country: None (occurrence: None)
  Receive Date: 20061013
  Receipt Date: 20061010
  Transmission Date: 20070319
  Serious: Yes (Other)
  Sender: FDA-Public Use
  Company Number: CH-2006-030077

PATIENT

DRUGS (1)
  1. ULTRAVIST 300 [Suspect]
     Dosage: LOPROMIDUM PER 1 ML, INTRAVENOUS
     Route: 042

REACTIONS (2)
  - LOCAL SWELLING [None]
  - RASH [None]
